FAERS Safety Report 10343611 (Version 2)
Quarter: 2014Q3

REPORT INFORMATION
  Report Type: Spontaneous
  Country: FR (occurrence: FR)
  Receive Date: 20140725
  Receipt Date: 20140806
  Transmission Date: 20150326
  Serious: Yes (Life-Threatening, Hospitalization)
  Sender: FDA-Public Use
  Company Number: FR-GLAXOSMITHKLINE-B1015206A

PATIENT
  Age: 33 Year
  Sex: Female

DRUGS (5)
  1. NORDAZ [Concomitant]
     Active Substance: NORDAZEPAM
     Indication: PRODUCT USED FOR UNKNOWN INDICATION
     Route: 065
  2. LAMICTAL [Suspect]
     Active Substance: LAMOTRIGINE
     Indication: EPILEPSY
     Dosage: 200MG PER DAY
     Route: 048
  3. KEPPRA [Suspect]
     Active Substance: LEVETIRACETAM
     Indication: EPILEPSY
     Dosage: 3G PER DAY
     Route: 048
  4. NOCTAMIDE [Concomitant]
     Active Substance: LORMETAZEPAM
     Indication: PRODUCT USED FOR UNKNOWN INDICATION
     Route: 065
  5. ZONEGRAN [Suspect]
     Active Substance: ZONISAMIDE
     Indication: EPILEPSY
     Dosage: 100MG SEE DOSAGE TEXT
     Route: 048
     Dates: start: 20100115, end: 20140406

REACTIONS (10)
  - Lung infection [Recovered/Resolved]
  - Depression [Recovered/Resolved with Sequelae]
  - Anxiety [Recovered/Resolved]
  - Hypotension [Recovered/Resolved]
  - Metabolic acidosis [Recovered/Resolved]
  - Intentional overdose [Unknown]
  - Coma [Recovered/Resolved]
  - Negative thoughts [Recovered/Resolved]
  - Suicide attempt [Recovered/Resolved with Sequelae]
  - Miosis [Recovered/Resolved]

NARRATIVE: CASE EVENT DATE: 201001
